FAERS Safety Report 18599031 (Version 1)
Quarter: 2020Q4

REPORT INFORMATION
  Report Type: Spontaneous
  Country: US (occurrence: US)
  Receive Date: 20201210
  Receipt Date: 20201210
  Transmission Date: 20210114
  Serious: No
  Sender: FDA-Public Use
  Company Number: US-MICRO LABS LIMITED-ML2020-03074

PATIENT
  Age: 45 Year
  Sex: Female
  Weight: 54.48 kg

DRUGS (2)
  1. NORETHISTERONE [Concomitant]
     Active Substance: NORETHINDRONE
     Indication: ORAL CONTRACEPTION
  2. SODIUM CROMOGLICATE [Suspect]
     Active Substance: CROMOLYN SODIUM
     Indication: MASTOCYTOSIS
     Dosage: 100 MG/5 ML
     Route: 048
     Dates: start: 202009

REACTIONS (1)
  - Tinnitus [Unknown]
